FAERS Safety Report 6086052-4 (Version None)
Quarter: 2009Q1

REPORT INFORMATION
  Report Type: 
  Country: None (occurrence: None)
  Receive Date: 20090217
  Receipt Date: 20090217
  Transmission Date: 20090719
  Serious: Yes (Other)
  Sender: FDA-Public Use
  Company Number: None

PATIENT
  Age: 6 Year
  Sex: Male
  Weight: 24.9478 kg

DRUGS (6)
  1. XOPENEX [Suspect]
     Indication: ASTHMA
     Dosage: 2 PUFFS 3 X DAILY INHAL
     Route: 055
     Dates: start: 20090213, end: 20090216
  2. XOPENEX [Suspect]
     Indication: BRONCHIAL HYPERREACTIVITY
     Dosage: 2 PUFFS 3 X DAILY INHAL
     Route: 055
     Dates: start: 20090213, end: 20090216
  3. XOPENEX [Suspect]
     Indication: COUGH
     Dosage: 2 PUFFS 3 X DAILY INHAL
     Route: 055
     Dates: start: 20090213, end: 20090216
  4. ALBUTEROL [Suspect]
     Indication: ASTHMA
     Dosage: 2 PUFFS EVERY 4 HOURS INHAL
     Route: 055
     Dates: start: 20081202, end: 20081206
  5. ALBUTEROL [Suspect]
     Indication: BRONCHIAL HYPERREACTIVITY
     Dosage: 2 PUFFS EVERY 4 HOURS INHAL
     Route: 055
     Dates: start: 20081202, end: 20081206
  6. ALBUTEROL [Suspect]
     Indication: COUGH
     Dosage: 2 PUFFS EVERY 4 HOURS INHAL
     Route: 055
     Dates: start: 20081202, end: 20081206

REACTIONS (4)
  - ABNORMAL BEHAVIOUR [None]
  - AGGRESSION [None]
  - CONTUSION [None]
  - PERSONALITY CHANGE [None]
